FAERS Safety Report 6072648-2 (Version None)
Quarter: 2009Q1

REPORT INFORMATION
  Report Type: 
  Country: None (occurrence: None)
  Receive Date: 20090210
  Receipt Date: 20090129
  Transmission Date: 20090719
  Serious: Yes (Hospitalization)
  Sender: FDA-Public Use
  Company Number: FR-PFIZER INC-2009163789

PATIENT

DRUGS (2)
  1. BLINDED *PLACEBO [Suspect]
     Indication: MALIGNANT NEOPLASM OF ISLETS OF LANGERHANS
     Dosage: 37.5 MG, 1X/DAY
     Route: 048
     Dates: start: 20070816
  2. BLINDED SUNITINIB MALATE [Suspect]
     Indication: MALIGNANT NEOPLASM OF ISLETS OF LANGERHANS
     Dosage: 37.5 MG, 1X/DAY
     Route: 048
     Dates: start: 20070816

REACTIONS (1)
  - RENAL FAILURE [None]
